FAERS Safety Report 10337522 (Version 3)
Quarter: 2015Q1

REPORT INFORMATION
  Report Type: Report from Study
  Country: US (occurrence: US)
  Receive Date: 20140724
  Receipt Date: 20150210
  Transmission Date: 20150720
  Serious: No
  Sender: FDA-Public Use
  Company Number: US-AMGEN-USASP2014054977

PATIENT
  Age: 51 Year
  Sex: Female

DRUGS (1)
  1. ENBREL [Suspect]
     Active Substance: ETANERCEPT
     Indication: PSORIASIS
     Dosage: 50 MG, QWK
     Route: 065
     Dates: start: 20140612

REACTIONS (9)
  - Otitis media [Recovered/Resolved]
  - Skin plaque [Recovered/Resolved]
  - Burning sensation [Not Recovered/Not Resolved]
  - Pruritus [Recovering/Resolving]
  - Blood glucose increased [Recovered/Resolved]
  - Dermatitis contact [Unknown]
  - Localised infection [Not Recovered/Not Resolved]
  - Eye discharge [Recovered/Resolved]
  - Conjunctivitis [Recovered/Resolved]

NARRATIVE: CASE EVENT DATE: 20140612
